FAERS Safety Report 7532245-6 (Version None)
Quarter: 2011Q2

REPORT INFORMATION
  Report Type: 
  Country: None (occurrence: None)
  Receive Date: 20110608
  Receipt Date: 20110525
  Transmission Date: 20111010
  Serious: Yes (Hospitalization)
  Sender: FDA-Public Use
  Company Number: US-JNJFOC-20110511588

PATIENT
  Sex: Female
  Weight: 55.79 kg

DRUGS (3)
  1. REMICADE [Suspect]
     Dosage: DOSE INCREASED
     Route: 042
     Dates: start: 20110401
  2. PREVACID [Concomitant]
     Indication: NAUSEA
     Route: 048
  3. REMICADE [Suspect]
     Indication: COLITIS ULCERATIVE
     Route: 042
     Dates: start: 20101225

REACTIONS (4)
  - ALOPECIA [None]
  - DRUG INEFFECTIVE [None]
  - DEPRESSION [None]
  - DIARRHOEA HAEMORRHAGIC [None]
